FAERS Safety Report 24361912 (Version 1)
Quarter: 2024Q3

REPORT INFORMATION
  Report Type: Spontaneous
  Country: US (occurrence: US)
  Receive Date: 20240925
  Receipt Date: 20240925
  Transmission Date: 20241017
  Serious: Yes (Other)
  Sender: BRISTOL MYERS SQUIBB
  Company Number: US-BRISTOL-MYERS SQUIBB COMPANY-2024-150000

PATIENT
  Age: 84 Year
  Sex: Male
  Weight: 77.56 kg

DRUGS (6)
  1. REVLIMID [Suspect]
     Active Substance: LENALIDOMIDE
     Indication: Plasma cell myeloma
     Dosage: 21 DAYS ON, 7 DAYS OFF
     Route: 048
     Dates: start: 20240530
  2. REVLIMID [Suspect]
     Active Substance: LENALIDOMIDE
     Dosage: 7 ON, 7 OFF
     Route: 048
  3. ACYCLOVIR [Concomitant]
     Active Substance: ACYCLOVIR
     Indication: Product used for unknown indication
     Dosage: DAILY
     Route: 048
  4. ATORVASTATIN CALCIUM [Concomitant]
     Active Substance: ATORVASTATIN CALCIUM
     Indication: Product used for unknown indication
     Dosage: DAILY
     Route: 048
  5. FINASTERIDE [Concomitant]
     Active Substance: FINASTERIDE
     Indication: Product used for unknown indication
     Dosage: DAILY
     Route: 048
  6. TAMSULOSIN [Concomitant]
     Active Substance: TAMSULOSIN
     Indication: Product used for unknown indication
     Dosage: DAILY
     Route: 048

REACTIONS (2)
  - Cytopenia [Recovered/Resolved]
  - Off label use [Unknown]
